FAERS Safety Report 21412981 (Version 4)
Quarter: 2023Q2

REPORT INFORMATION
  Report Type: Report from Study
  Country: JP (occurrence: JP)
  Receive Date: 20221005
  Receipt Date: 20230613
  Transmission Date: 20230721
  Serious: Yes (Death, Hospitalization, Other)
  Sender: FDA-Public Use
  Company Number: JP-TAKEDA-2022TJP074967

PATIENT
  Age: 7 Decade
  Sex: Male

DRUGS (8)
  1. TEDUGLUTIDE [Suspect]
     Active Substance: TEDUGLUTIDE
     Indication: Short-bowel syndrome
     Dosage: UNK UNK, QD
     Route: 058
     Dates: start: 20220809, end: 20220810
  2. TEDUGLUTIDE [Suspect]
     Active Substance: TEDUGLUTIDE
     Indication: Short-bowel syndrome
     Dosage: UNK UNK, QD
     Route: 058
     Dates: start: 20220809, end: 20220810
  3. TEDUGLUTIDE [Suspect]
     Active Substance: TEDUGLUTIDE
     Indication: Short-bowel syndrome
     Dosage: UNK UNK, QD
     Route: 058
     Dates: start: 20220809, end: 20220810
  4. TEDUGLUTIDE [Suspect]
     Active Substance: TEDUGLUTIDE
     Indication: Short-bowel syndrome
     Dosage: UNK UNK, QD
     Route: 058
     Dates: start: 20220809, end: 20220810
  5. TEDUGLUTIDE [Suspect]
     Active Substance: TEDUGLUTIDE
     Dosage: UNK
     Route: 058
     Dates: end: 20221002
  6. TEDUGLUTIDE [Suspect]
     Active Substance: TEDUGLUTIDE
     Dosage: UNK
     Route: 058
     Dates: end: 20221002
  7. TEDUGLUTIDE [Suspect]
     Active Substance: TEDUGLUTIDE
     Dosage: UNK
     Route: 058
     Dates: end: 20221002
  8. TEDUGLUTIDE [Suspect]
     Active Substance: TEDUGLUTIDE
     Dosage: UNK
     Route: 058
     Dates: end: 20221002

REACTIONS (4)
  - Pyrexia [Fatal]
  - Device related infection [Recovered/Resolved]
  - Acute kidney injury [Fatal]
  - Pyrexia [Not Recovered/Not Resolved]

NARRATIVE: CASE EVENT DATE: 20220811
